FAERS Safety Report 11726021 (Version 2)
Quarter: 2015Q4

REPORT INFORMATION
  Report Type: Spontaneous
  Country: BR (occurrence: BR)
  Receive Date: 20151112
  Receipt Date: 20151124
  Transmission Date: 20160304
  Serious: Yes (Hospitalization, Other)
  Sender: FDA-Public Use
  Company Number: BR-ASTRAZENECA-2015SF08260

PATIENT
  Age: 937 Month
  Sex: Female
  Weight: 73 kg

DRUGS (6)
  1. ATACAND HCT [Suspect]
     Active Substance: CANDESARTAN CILEXETIL\HYDROCHLOROTHIAZIDE
     Indication: HYPERTENSION
     Dosage: 16/12.5 MG, 1/2 TABLET DAILY
     Route: 048
  2. PANTOPRAZOLE [Concomitant]
     Active Substance: PANTOPRAZOLE SODIUM
     Indication: DYSPEPSIA
     Dosage: DAILY
     Route: 048
  3. ASPIRIN PREVENT [Concomitant]
     Indication: ANTICOAGULANT THERAPY
     Dosage: DAILY
     Route: 048
     Dates: start: 2010
  4. EUTHYROX [Concomitant]
     Active Substance: LEVOTHYROXINE SODIUM
     Indication: HYPOTHYROIDISM
     Dosage: DAILY
     Route: 048
  5. BRILINTA [Suspect]
     Active Substance: TICAGRELOR
     Indication: ANTICOAGULANT THERAPY
     Route: 048
     Dates: start: 201508
  6. SIMVASTATIN. [Concomitant]
     Active Substance: SIMVASTATIN

REACTIONS (5)
  - Coronary artery occlusion [Recovered/Resolved]
  - Arthritis [Recovered/Resolved]
  - Fall [Recovered/Resolved with Sequelae]
  - Fatigue [Not Recovered/Not Resolved]
  - Increased tendency to bruise [Not Recovered/Not Resolved]

NARRATIVE: CASE EVENT DATE: 201507
